FAERS Safety Report 12049556 (Version 2)
Quarter: 2017Q1

REPORT INFORMATION
  Report Type: Spontaneous
  Country: US (occurrence: US)
  Receive Date: 20160209
  Receipt Date: 20170131
  Transmission Date: 20170428
  Serious: No
  Sender: FDA-Public Use
  Company Number: US-ABBVIE-15P-163-1420712-00

PATIENT

DRUGS (1)
  1. HUMIRA [Suspect]
     Active Substance: ADALIMUMAB
     Indication: PSORIATIC ARTHROPATHY
     Route: 058

REACTIONS (22)
  - Arthropathy [Unknown]
  - Arthritis [Unknown]
  - Aphasia [Unknown]
  - Migraine [Unknown]
  - Hypotension [Unknown]
  - Fatigue [Unknown]
  - Communication disorder [Unknown]
  - Irritability [Unknown]
  - Post-traumatic stress disorder [Unknown]
  - Mobility decreased [Unknown]
  - Fibromyalgia [Unknown]
  - Eyelid pain [Recovered/Resolved]
  - Heart rate increased [Unknown]
  - Eyelid infection [Recovered/Resolved]
  - Loss of consciousness [Unknown]
  - Pain [Unknown]
  - Eye infection [Unknown]
  - Malaise [Unknown]
  - Joint injury [Unknown]
  - Feeling abnormal [Unknown]
  - Skin disorder [Unknown]
  - Vertigo [Unknown]
